FAERS Safety Report 5622018-3 (Version None)
Quarter: 2008Q1

REPORT INFORMATION
  Report Type: 
  Country: None (occurrence: None)
  Receive Date: 20080211
  Receipt Date: 20080201
  Transmission Date: 20080703
  Serious: Yes (Hospitalization)
  Sender: FDA-Public Use
  Company Number: US-JNJFOC-20070302354

PATIENT
  Sex: Female
  Weight: 73.48 kg

DRUGS (4)
  1. ORTHO EVRA [Suspect]
     Indication: CONTRACEPTION
     Route: 062
  2. NYQUIL [Concomitant]
     Route: 065
  3. MECLIZINE [Concomitant]
     Indication: DIZZINESS
     Route: 065
  4. ADVIL [Concomitant]
     Indication: HEADACHE
     Route: 065

REACTIONS (5)
  - ARTERY DISSECTION [None]
  - CEREBELLAR ATROPHY [None]
  - CEREBELLAR INFARCTION [None]
  - CEREBRAL INFARCTION [None]
  - CEREBROVASCULAR ACCIDENT [None]
